FAERS Safety Report 5570139-6 (Version None)
Quarter: 2007Q4

REPORT INFORMATION
  Report Type: 
  Country: None (occurrence: None)
  Receive Date: 20071220
  Receipt Date: 20071211
  Transmission Date: 20080405
  Serious: Yes (Other)
  Sender: FDA-Public Use
  Company Number: US-PFIZER INC-2007046281

PATIENT
  Sex: Female

DRUGS (1)
  1. BEXTRA [Suspect]
     Indication: COSTOCHONDRITIS
     Dosage: FREQ:10-20MG PER DAY

REACTIONS (1)
  - STEVENS-JOHNSON SYNDROME [None]
